FAERS Safety Report 19436908 (Version 4)
Quarter: 2021Q4

REPORT INFORMATION
  Report Type: Report from Study
  Country: US (occurrence: US)
  Receive Date: 20210618
  Receipt Date: 20211213
  Transmission Date: 20220303
  Serious: Yes (Other)
  Sender: FDA-Public Use
  Company Number: NVSC2021US124528

PATIENT
  Age: 74 Year
  Sex: Female

DRUGS (3)
  1. ENTRESTO [Suspect]
     Active Substance: SACUBITRIL\VALSARTAN
     Indication: Product used for unknown indication
     Dosage: 1 DF (24/26 MG), BID
     Route: 048
  2. ENTRESTO [Suspect]
     Active Substance: SACUBITRIL\VALSARTAN
     Dosage: 1 DF (49/51 MG), BID
     Route: 048
  3. HYDRALAZINE [Suspect]
     Active Substance: HYDRALAZINE HYDROCHLORIDE
     Indication: Product used for unknown indication
     Dosage: UNK
     Route: 065

REACTIONS (12)
  - Choking [Recovered/Resolved]
  - Spinal fracture [Unknown]
  - Fall [Unknown]
  - Hypotension [Unknown]
  - Confusional state [Not Recovered/Not Resolved]
  - Memory impairment [Not Recovered/Not Resolved]
  - Feeling drunk [Not Recovered/Not Resolved]
  - Frequent bowel movements [Unknown]
  - Pollakiuria [Unknown]
  - Disturbance in attention [Not Recovered/Not Resolved]
  - Back pain [Unknown]
  - Anxiety [Unknown]

NARRATIVE: CASE EVENT DATE: 20210609
